FAERS Safety Report 15084704 (Version 5)
Quarter: 2018Q3

REPORT INFORMATION
  Report Type: Spontaneous
  Country: FR (occurrence: FR)
  Receive Date: 20180628
  Receipt Date: 20180914
  Transmission Date: 20181010
  Serious: Yes (Hospitalization, Other)
  Sender: FDA-Public Use
  Company Number: FR-TAKEDA-2018TUS020997

PATIENT
  Sex: Female

DRUGS (12)
  1. XANAX [Concomitant]
     Active Substance: ALPRAZOLAM
     Indication: PRODUCT USED FOR UNKNOWN INDICATION
     Dosage: UNK
     Route: 065
  2. NOCTAMIDE [Concomitant]
     Active Substance: LORMETAZEPAM
     Indication: PRODUCT USED FOR UNKNOWN INDICATION
     Dosage: 2 MG, UNK
     Route: 065
  3. BRINTELLIX [Suspect]
     Active Substance: VORTIOXETINE HYDROBROMIDE
     Dosage: 15 MG, UNK
     Route: 065
  4. BRINTELLIX [Suspect]
     Active Substance: VORTIOXETINE HYDROBROMIDE
     Dosage: 20 MG, UNK
     Route: 065
  5. LASILIX                            /00032601/ [Concomitant]
     Active Substance: FUROSEMIDE
     Indication: PRODUCT USED FOR UNKNOWN INDICATION
     Dosage: UNK
     Route: 065
  6. BRINTELLIX [Suspect]
     Active Substance: VORTIOXETINE HYDROBROMIDE
     Indication: DEPRESSION
     Dosage: 5 MG, QD
     Route: 048
     Dates: start: 2018
  7. BRINTELLIX [Suspect]
     Active Substance: VORTIOXETINE HYDROBROMIDE
     Dosage: 10 MG, UNK
     Route: 065
  8. ALDACTONE 50 HCT [Concomitant]
     Indication: PRODUCT USED FOR UNKNOWN INDICATION
     Dosage: UNK
     Route: 065
  9. SEROPLEX [Suspect]
     Active Substance: ESCITALOPRAM OXALATE
     Indication: PRODUCT USED FOR UNKNOWN INDICATION
     Dosage: UNK
     Route: 065
  10. INEXIUM                            /01479302/ [Concomitant]
     Active Substance: ESOMEPRAZOLE MAGNESIUM
     Indication: PRODUCT USED FOR UNKNOWN INDICATION
     Dosage: UNK
     Route: 065
  11. DEPAKOTE [Concomitant]
     Active Substance: DIVALPROEX SODIUM
     Indication: PRODUCT USED FOR UNKNOWN INDICATION
     Dosage: UNK
     Route: 065
  12. KARDEGIC [Concomitant]
     Active Substance: ASPIRIN DL-LYSINE
     Indication: PRODUCT USED FOR UNKNOWN INDICATION
     Dosage: UNK
     Route: 065

REACTIONS (19)
  - Aggression [Recovered/Resolved]
  - Persecutory delusion [Recovering/Resolving]
  - Irritability [Recovering/Resolving]
  - Mania [Recovered/Resolved]
  - Weight increased [Recovering/Resolving]
  - Affect lability [Recovering/Resolving]
  - Derealisation [Recovering/Resolving]
  - Grandiosity [Recovered/Resolved]
  - Stent placement [Recovering/Resolving]
  - Disinhibition [Recovering/Resolving]
  - Obsessive-compulsive disorder [Recovered/Resolved]
  - Myocardial infarction [Recovering/Resolving]
  - Oedema [Recovering/Resolving]
  - Suicidal ideation [Recovering/Resolving]
  - Compulsive shopping [Recovered/Resolved]
  - Insomnia [Recovered/Resolved]
  - Thinking abnormal [Recovered/Resolved]
  - Verbal abuse [Recovering/Resolving]
  - Cardiac failure [Recovered/Resolved]

NARRATIVE: CASE EVENT DATE: 201806
